FAERS Safety Report 6328206-5 (Version None)
Quarter: 2009Q3

REPORT INFORMATION
  Report Type: 
  Country: None (occurrence: None)
  Receive Date: 20090825
  Receipt Date: 20090108
  Transmission Date: 20100115
  Serious: No
  Sender: FDA-Public Use
  Company Number: US-ABBOTT-09P-163-0495522-00

PATIENT
  Sex: Female
  Weight: 83.99 kg

DRUGS (4)
  1. SYNTHROID [Suspect]
     Indication: HYPOTHYROIDISM
     Dates: start: 20081024, end: 20081212
  2. SYNTHROID [Suspect]
     Dosage: ONE AND A HALF TABS DAILY
     Route: 048
     Dates: start: 20081228
  3. SYNTHROID [Suspect]
     Indication: HYPOTHYROIDISM
     Route: 048
     Dates: start: 20081212, end: 20081228
  4. AVELOX [Suspect]
     Indication: BRONCHITIS
     Dosage: UNKNOWN
     Dates: start: 20081218, end: 20081227

REACTIONS (6)
  - BLOOD THYROID STIMULATING HORMONE INCREASED [None]
  - BRONCHITIS [None]
  - COUGH [None]
  - DYSGEUSIA [None]
  - FATIGUE [None]
  - HYPERSOMNIA [None]
